FAERS Safety Report 24623433 (Version 5)
Quarter: 2025Q3

REPORT INFORMATION
  Report Type: Spontaneous
  Country: US (occurrence: US)
  Receive Date: 20241115
  Receipt Date: 20250909
  Transmission Date: 20251020
  Serious: Yes (Hospitalization, Other)
  Sender: BIOGEN
  Company Number: US-BIOGEN-2024BI01286534

PATIENT
  Sex: Female

DRUGS (1)
  1. TYSABRI [Suspect]
     Active Substance: NATALIZUMAB
     Indication: Multiple sclerosis
     Dosage: INFUSED OVER 1 HOUR
     Route: 050
     Dates: start: 20180504, end: 20250530

REACTIONS (7)
  - Postoperative wound infection [Recovered/Resolved]
  - Bone cancer [Not Recovered/Not Resolved]
  - Skin cancer [Unknown]
  - Glucose tolerance impaired [Unknown]
  - Mobility decreased [Unknown]
  - Wound dehiscence [Unknown]
  - Weight decreased [Unknown]
